FAERS Safety Report 9981949 (Version 1)
Quarter: 2014Q1

REPORT INFORMATION
  Report Type: Report from Study
  Country: US (occurrence: US)
  Receive Date: 20140307
  Receipt Date: 20140307
  Transmission Date: 20141002
  Serious: No
  Sender: FDA-Public Use
  Company Number: US-ABBVIE-13P-163-1179325-00

PATIENT
  Age: 72 Year
  Sex: Male

DRUGS (8)
  1. HUMIRA [Suspect]
     Indication: CROHN^S DISEASE
     Dates: start: 20131115, end: 20131115
  2. HUMIRA [Suspect]
     Dates: start: 20131129, end: 20131129
  3. HUMIRA [Suspect]
  4. ATENOLOL [Concomitant]
     Indication: HYPERTENSION
  5. MICARDIS [Concomitant]
     Indication: BLOOD PRESSURE
  6. LANSOPRAZOLE [Concomitant]
     Indication: GASTROOESOPHAGEAL REFLUX DISEASE
     Dosage: AT DINNER TIME
  7. RAPAFLO [Concomitant]
     Indication: BLADDER SPASM
  8. RAPAFLO [Concomitant]
     Indication: PROSTATE CANCER

REACTIONS (1)
  - Fatigue [Not Recovered/Not Resolved]
